FAERS Safety Report 16183750 (Version 1)
Quarter: 2019Q2

REPORT INFORMATION
  Report Type: Spontaneous
  Country: US (occurrence: US)
  Receive Date: 20190411
  Receipt Date: 20190411
  Transmission Date: 20190711
  Serious: No
  Sender: FDA-Public Use
  Company Number: US-BAYER-2019-073110

PATIENT

DRUGS (12)
  1. ACYCLOVIR [ACICLOVIR SODIUM] [Concomitant]
     Active Substance: ACYCLOVIR
  2. CEPHALEXIN [CEFALEXIN MONOHYDRATE] [Concomitant]
     Active Substance: CEPHALEXIN MONOHYDRATE
  3. ATENOLOL. [Concomitant]
     Active Substance: ATENOLOL
  4. OMEPRAZOLE. [Concomitant]
     Active Substance: OMEPRAZOLE
  5. VENTOLIN HFA [Concomitant]
     Active Substance: ALBUTEROL SULFATE
     Dosage: UNK
  6. ASPIRIN [ACETYLSALICYLIC ACID] [Concomitant]
     Active Substance: ASPIRIN
  7. VELCADE [Concomitant]
     Active Substance: BORTEZOMIB
  8. POMALYST [Concomitant]
     Active Substance: POMALIDOMIDE
  9. CLARITIN [Suspect]
     Active Substance: LORATADINE
     Dosage: UNK
  10. MULTIVITAMINS [VITAMINS NOS] [Concomitant]
     Active Substance: VITAMINS
  11. FLUOROURACIL. [Concomitant]
     Active Substance: FLUOROURACIL
  12. POTASSIUM CHLORIDE. [Concomitant]
     Active Substance: POTASSIUM CHLORIDE

REACTIONS (2)
  - Drug hypersensitivity [Unknown]
  - Blood pressure increased [Unknown]
